FAERS Safety Report 18074623 (Version 2)
Quarter: 2020Q3

REPORT INFORMATION
  Report Type: Spontaneous
  Country: GB (occurrence: GB)
  Receive Date: 20200727
  Receipt Date: 20200916
  Transmission Date: 20201103
  Serious: Yes (Hospitalization)
  Sender: FDA-Public Use
  Company Number: GB-VERTEX PHARMACEUTICALS-2020-015183

PATIENT
  Sex: Male
  Weight: 53.1 kg

DRUGS (1)
  1. KALYDECO [Suspect]
     Active Substance: IVACAFTOR
     Indication: CYSTIC FIBROSIS
     Dosage: 150 MG
     Route: 048
     Dates: start: 2012

REACTIONS (6)
  - Cystic fibrosis related diabetes [Unknown]
  - Mycobacterium abscessus infection [Unknown]
  - Pseudomonas infection [Unknown]
  - Staphylococcal infection [Unknown]
  - Pancreatic failure [Unknown]
  - Distal intestinal obstruction syndrome [Unknown]

NARRATIVE: CASE EVENT DATE: 2013
